FAERS Safety Report 7684304-5 (Version None)
Quarter: 2011Q3

REPORT INFORMATION
  Report Type: 
  Country: None (occurrence: None)
  Receive Date: 20110815
  Receipt Date: 20110802
  Transmission Date: 20111222
  Serious: Yes (Other)
  Sender: FDA-Public Use
  Company Number: GB-MYLANLABS-2011S1016056

PATIENT
  Age: 16 Year
  Sex: Female

DRUGS (4)
  1. SEROQUEL [Suspect]
     Indication: OBSESSIVE-COMPULSIVE DISORDER
     Route: 048
  2. SERTRALINE HYDROCHLORIDE [Suspect]
     Indication: PRODUCT USED FOR UNKNOWN INDICATION
     Route: 048
     Dates: start: 20110710
  3. SERTRALINE HYDROCHLORIDE [Suspect]
     Route: 048
     Dates: start: 20110710
  4. SEROQUEL [Suspect]
     Route: 048
     Dates: start: 20110710

REACTIONS (2)
  - OFF LABEL USE [None]
  - OVERDOSE [None]
